FAERS Safety Report 4618503-3 (Version None)
Quarter: 2005Q1

REPORT INFORMATION
  Report Type: 
  Country: None (occurrence: None)
  Receive Date: 20050323
  Receipt Date: 20050301
  Transmission Date: 20050727
  Serious: No
  Sender: FDA-Public Use
  Company Number: JP_050306036

PATIENT
  Age: 20 Year
  Sex: Female

DRUGS (3)
  1. ZYPREXA [Suspect]
     Indication: SCHIZOPHRENIA
     Dosage: 10 MG DAY
     Dates: start: 20010625, end: 20050208
  2. NITRAZEPAM [Concomitant]
  3. LEVOTOMIN (LEVOMEPROMAZINE MALEATE) [Concomitant]

REACTIONS (2)
  - MODERATE MENTAL RETARDATION [None]
  - PLATELET COUNT DECREASED [None]
